FAERS Safety Report 12632474 (Version 2)
Quarter: 2016Q3

REPORT INFORMATION
  Report Type: Spontaneous
  Country: US (occurrence: US)
  Receive Date: 20160808
  Receipt Date: 20160808
  Transmission Date: 20161109
  Serious: No
  Sender: FDA-Public Use
  Company Number: US-BEH-2016063007

PATIENT
  Sex: Female
  Weight: 96 kg

DRUGS (19)
  1. NAPROXEN. [Concomitant]
     Active Substance: NAPROXEN
  2. TOPROL XL [Concomitant]
     Active Substance: METOPROLOL SUCCINATE
  3. EPIPEN [Concomitant]
     Active Substance: EPINEPHRINE
  4. HIZENTRA [Suspect]
     Active Substance: HUMAN IMMUNOGLOBULIN G
     Route: 058
  5. HIZENTRA [Suspect]
     Active Substance: HUMAN IMMUNOGLOBULIN G
     Route: 058
  6. TOBRAMYCIN. [Concomitant]
     Active Substance: TOBRAMYCIN
  7. MULTIVITAMINS [Concomitant]
     Active Substance: VITAMINS
  8. ACETAMINOPHEN. [Concomitant]
     Active Substance: ACETAMINOPHEN
  9. DIPHENHYDRAMINE. [Concomitant]
     Active Substance: DIPHENHYDRAMINE
  10. CALCIUM [Concomitant]
     Active Substance: CALCIUM
  11. HIZENTRA [Suspect]
     Active Substance: HUMAN IMMUNOGLOBULIN G
     Indication: HYPOGAMMAGLOBULINAEMIA
     Route: 058
  12. ASPIRIN. [Concomitant]
     Active Substance: ASPIRIN
  13. GARLIC. [Concomitant]
     Active Substance: GARLIC
  14. NORVASC [Concomitant]
     Active Substance: AMLODIPINE BESYLATE
  15. LIPITOR [Concomitant]
     Active Substance: ATORVASTATIN CALCIUM
  16. LOSARTAN. [Concomitant]
     Active Substance: LOSARTAN
  17. SPIRONOLACTONE. [Concomitant]
     Active Substance: SPIRONOLACTONE
  18. TRAMADOL. [Concomitant]
     Active Substance: TRAMADOL
  19. FISH OIL [Concomitant]
     Active Substance: FISH OIL

REACTIONS (1)
  - Sinusitis [Unknown]
